FAERS Safety Report 20808469 (Version 1)
Quarter: 2022Q2

REPORT INFORMATION
  Report Type: Spontaneous
  Country: CN (occurrence: CN)
  Receive Date: 20220510
  Receipt Date: 20220510
  Transmission Date: 20220721
  Serious: Yes (Other)
  Sender: FDA-Public Use
  Company Number: CN-PFIZER INC-202200631468

PATIENT
  Age: 95 Year
  Sex: Female

DRUGS (4)
  1. AZITHROMYCIN [Suspect]
     Active Substance: AZITHROMYCIN
     Indication: Anti-infective therapy
     Dosage: UNK
  2. CLINDAMYCIN [Suspect]
     Active Substance: CLINDAMYCIN
     Indication: Anti-infective therapy
     Dosage: UNK
  3. CEFTIZOXIME [Suspect]
     Active Substance: CEFTIZOXIME
     Indication: Anti-infective therapy
     Dosage: UNK
  4. LEVOFLOXACIN [Suspect]
     Active Substance: LEVOFLOXACIN
     Indication: Anti-infective therapy
     Dosage: UNK

REACTIONS (6)
  - Prothrombin time prolonged [Recovering/Resolving]
  - Haemoglobin decreased [Unknown]
  - Procalcitonin increased [Recovering/Resolving]
  - White blood cell count increased [Recovering/Resolving]
  - Red blood cell count increased [Unknown]
  - Pyrexia [Unknown]

NARRATIVE: CASE EVENT DATE: 20220411
